FAERS Safety Report 8786194 (Version 2)
Quarter: 2013Q1

REPORT INFORMATION
  Report Type: Report from Study
  Country: US (occurrence: US)
  Receive Date: 20120914
  Receipt Date: 20130306
  Transmission Date: 20140127
  Serious: No
  Sender: FDA-Public Use
  Company Number: US-VERTEX PHARMACEUTICAL INC.-AE-2012-009571

PATIENT
  Age: 56 None
  Sex: Female
  Weight: 55 kg

DRUGS (4)
  1. VX-950 (TELAPREVIR) [Suspect]
     Indication: HEPATITIS C
     Dosage: 750 MG, TID
     Route: 048
     Dates: start: 201205, end: 20120719
  2. PEGASYS [Suspect]
     Indication: HEPATITIS C
     Dosage: 180 ?G, QW
     Route: 058
     Dates: start: 201205, end: 20120720
  3. RIBAPAK [Suspect]
     Indication: HEPATITIS C
     Dosage: 400 MG, BID
     Route: 048
     Dates: start: 201205, end: 20120720
  4. CIPROFLOXACIN [Concomitant]

REACTIONS (7)
  - Chest discomfort [Unknown]
  - Urinary tract infection [Unknown]
  - Pyrexia [Unknown]
  - Cough [Unknown]
  - Oedema [Unknown]
  - Rash generalised [Recovered/Resolved]
  - Pruritus [Unknown]
